FAERS Safety Report 9922807 (Version 1)
Quarter: 2014Q1

REPORT INFORMATION
  Report Type: Spontaneous
  Country: US (occurrence: US)
  Receive Date: 20140225
  Receipt Date: 20140225
  Transmission Date: 20141002
  Serious: Yes (Other)
  Sender: FDA-Public Use
  Company Number: US-TEVA-464419USA

PATIENT
  Age: 60 Year
  Sex: Female
  Weight: 59.02 kg

DRUGS (7)
  1. PROAIR HFA [Suspect]
     Indication: WHEEZING
     Route: 055
  2. LAMICTAL [Concomitant]
     Indication: DEPRESSION
  3. LAMICTAL [Concomitant]
  4. TRAZADONE [Concomitant]
     Indication: DEPRESSION
  5. TRAZADONE [Concomitant]
  6. ADVIL [Concomitant]
  7. ADVIL [Concomitant]

REACTIONS (10)
  - Loss of consciousness [Recovered/Resolved]
  - Hypotonia [Recovered/Resolved]
  - Dizziness [Recovered/Resolved]
  - Presyncope [Recovered/Resolved]
  - Feeling abnormal [Recovered/Resolved]
  - Visual impairment [Recovered/Resolved]
  - Fall [Recovered/Resolved]
  - Muscle twitching [Recovered/Resolved]
  - Dyspnoea [Not Recovered/Not Resolved]
  - Unevaluable event [Not Recovered/Not Resolved]
